FAERS Safety Report 16690503 (Version 8)
Quarter: 2022Q2

REPORT INFORMATION
  Report Type: Spontaneous
  Country: US (occurrence: US)
  Receive Date: 20190810
  Receipt Date: 20220426
  Transmission Date: 20220720
  Serious: No
  Sender: FDA-Public Use
  Company Number: PHEH2019US032703

PATIENT
  Sex: Male

DRUGS (3)
  1. TRAVATAN Z [Suspect]
     Active Substance: TRAVOPROST
     Indication: Product used for unknown indication
     Dosage: UNK UNK, QHS
     Route: 047
     Dates: start: 2001
  2. TRAVATAN Z [Suspect]
     Active Substance: TRAVOPROST
     Dosage: 0.004 %
     Route: 065
  3. TRAVATAN Z [Suspect]
     Active Substance: TRAVOPROST
     Dosage: 2.5 (1 DRP, QD) (EACH EYE DAILY SINCE IT WAS RELEASE IN 1999)
     Route: 065

REACTIONS (10)
  - Intraocular pressure increased [Unknown]
  - Eye swelling [Unknown]
  - Product dose omission issue [Unknown]
  - Ocular hyperaemia [Recovered/Resolved]
  - Nausea [Unknown]
  - Foreign body sensation in eyes [Recovered/Resolved]
  - Eye discharge [Unknown]
  - Eye pain [Unknown]
  - Photophobia [Recovered/Resolved]
  - Drug ineffective [Unknown]
